FAERS Safety Report 21393853 (Version 3)
Quarter: 2022Q4

REPORT INFORMATION
  Report Type: Spontaneous
  Country: US (occurrence: US)
  Receive Date: 20220930
  Receipt Date: 20221107
  Transmission Date: 20230112
  Serious: No
  Sender: FDA-Public Use
  Company Number: US-SA-SAC20220926000549

PATIENT
  Age: 39 Year
  Sex: Female

DRUGS (1)
  1. DUPIXENT [Suspect]
     Active Substance: DUPILUMAB
     Indication: Nasal polyps
     Dosage: 300 MG QOW
     Route: 058
     Dates: start: 20220907

REACTIONS (19)
  - Injection site hypersensitivity [Not Recovered/Not Resolved]
  - Injection site urticaria [Not Recovered/Not Resolved]
  - Gastrooesophageal reflux disease [Not Recovered/Not Resolved]
  - Constipation [Not Recovered/Not Resolved]
  - Swelling face [Not Recovered/Not Resolved]
  - Chest discomfort [Unknown]
  - Hunger [Unknown]
  - Abdominal pain upper [Unknown]
  - Malaise [Unknown]
  - Skin wrinkling [Unknown]
  - Dry skin [Unknown]
  - Throat tightness [Unknown]
  - Local reaction [Recovered/Resolved]
  - Urticaria [Not Recovered/Not Resolved]
  - Pruritus [Not Recovered/Not Resolved]
  - Erythema [Unknown]
  - Injection site pruritus [Not Recovered/Not Resolved]
  - Injection site swelling [Unknown]
  - Hypersensitivity [Not Recovered/Not Resolved]

NARRATIVE: CASE EVENT DATE: 20220901
